FAERS Safety Report 9183393 (Version 2)
Quarter: 2014Q1

REPORT INFORMATION
  Report Type: Spontaneous
  Country: US (occurrence: US)
  Receive Date: 20130322
  Receipt Date: 20140318
  Transmission Date: 20141002
  Serious: No
  Sender: FDA-Public Use
  Company Number: US-BRISTOL-MYERS SQUIBB COMPANY-17263880

PATIENT
  Age: 83 Year
  Sex: Male

DRUGS (9)
  1. ERBITUX [Suspect]
     Indication: HEAD AND NECK CANCER
     Dosage: 1DF:415 UNIT NOT CLEAR
     Route: 042
     Dates: start: 20121121, end: 20130118
  2. METFORMIN [Concomitant]
  3. CAPTOPRIL [Concomitant]
  4. LOVASTATIN [Concomitant]
  5. IMODIUM [Concomitant]
  6. ZOFRAN [Concomitant]
  7. MORPHINE SULFATE [Concomitant]
  8. PILOCARPINE [Concomitant]
  9. CLEOCIN GEL [Concomitant]

REACTIONS (1)
  - Blepharitis [Recovering/Resolving]
